FAERS Safety Report 7705941-5 (Version None)
Quarter: 2011Q3

REPORT INFORMATION
  Report Type: 
  Country: None (occurrence: None)
  Receive Date: 20110824
  Receipt Date: 20110816
  Transmission Date: 20111222
  Serious: Yes (Life-Threatening, Hospitalization, Other)
  Sender: FDA-Public Use
  Company Number: US-BAXTER-2011BH024391

PATIENT
  Age: 54 Year
  Sex: Female

DRUGS (2)
  1. GAMMAGARD LIQUID [Suspect]
     Indication: PRODUCT USED FOR UNKNOWN INDICATION
     Route: 042
     Dates: start: 20110711, end: 20110711
  2. GAMMAGARD LIQUID [Suspect]
     Route: 042
     Dates: start: 20110501

REACTIONS (2)
  - UNRESPONSIVE TO STIMULI [None]
  - RESPIRATORY FAILURE [None]
